FAERS Safety Report 23655196 (Version 1)
Quarter: 2024Q1

REPORT INFORMATION
  Report Type: Spontaneous
  Country: CN (occurrence: CN)
  Receive Date: 20240320
  Receipt Date: 20240320
  Transmission Date: 20240410
  Serious: Yes (Life-Threatening, Other)
  Sender: FDA-Public Use
  Company Number: CN-BAYER-2024A040937

PATIENT
  Age: 51 Year
  Sex: Male
  Weight: 81 kg

DRUGS (1)
  1. ULTRAVIST [Suspect]
     Active Substance: IOPROMIDE
     Indication: Angiocardiogram
     Dosage: 37 G, ONCE
     Route: 041
     Dates: start: 20240314, end: 20240314

REACTIONS (11)
  - Anaphylactic shock [Recovered/Resolved]
  - Vision blurred [Recovered/Resolved]
  - Altered state of consciousness [Recovered/Resolved]
  - Blood pressure decreased [Recovered/Resolved]
  - Unresponsive to stimuli [Recovered/Resolved]
  - Electrocardiogram ST-T change [Recovered/Resolved]
  - Pruritus [Recovered/Resolved]
  - Muscular weakness [Recovered/Resolved]
  - Respiratory rate increased [Recovered/Resolved]
  - Depressed mood [Recovered/Resolved]
  - Incorrect drug administration rate [None]

NARRATIVE: CASE EVENT DATE: 20240314
